FAERS Safety Report 9477217 (Version 1)
Quarter: 2013Q3

REPORT INFORMATION
  Report Type: Report from Study
  Country: BR (occurrence: BR)
  Receive Date: 20130826
  Receipt Date: 20130826
  Transmission Date: 20140515
  Serious: Yes (Death, Hospitalization)
  Sender: FDA-Public Use
  Company Number: BR-ABBOTT-13P-020-1137084-00

PATIENT
  Sex: Female

DRUGS (10)
  1. HUMIRA [Suspect]
     Indication: RHEUMATOID ARTHRITIS
     Route: 058
     Dates: start: 201305
  2. METHOTREXATE [Concomitant]
     Indication: RHEUMATOID ARTHRITIS
  3. PREDNISONE [Concomitant]
     Indication: RHEUMATOID ARTHRITIS
  4. TRAMAL [Concomitant]
     Indication: RHEUMATOID ARTHRITIS
  5. SYMBICORT [Concomitant]
     Indication: ASTHMA
     Dosage: FORM STRENGTH: 12/400
  6. AEROLIN [Concomitant]
     Indication: ASTHMA
     Dosage: FORM OF ADMINISTRATION: SPRAY
  7. CLENIL [Concomitant]
     Indication: ASTHMA
     Dosage: FORM OF ADMINISTRATION: SPRAY
  8. ALPRAZOLAM [Concomitant]
     Indication: CEREBRAL DISORDER
  9. ALPRAZOLAM [Concomitant]
     Indication: HEARING IMPAIRED
  10. OMEPRAZOLE [Concomitant]
     Indication: GASTRIC DISORDER

REACTIONS (5)
  - Dyspnoea [Fatal]
  - Fatigue [Fatal]
  - Pulmonary embolism [Fatal]
  - Respiratory arrest [Fatal]
  - Blood glucose increased [Unknown]
